FAERS Safety Report 23908280 (Version 2)
Quarter: 2024Q2

REPORT INFORMATION
  Report Type: Spontaneous
  Country: DE (occurrence: DE)
  Receive Date: 20240528
  Receipt Date: 20240530
  Transmission Date: 20240716
  Serious: Yes (Other)
  Sender: FDA-Public Use
  Company Number: DE-UCBSA-2024026622

PATIENT
  Age: 2 Year

DRUGS (2)
  1. FENFLURAMINE HYDROCHLORIDE [Suspect]
     Active Substance: FENFLURAMINE HYDROCHLORIDE
     Indication: Severe myoclonic epilepsy of infancy
     Dosage: UNK
     Dates: start: 202310
  2. VALPROATE [Concomitant]
     Active Substance: VALPROIC ACID
     Indication: Severe myoclonic epilepsy of infancy
     Dosage: UNK

REACTIONS (1)
  - Seizure [Unknown]
